FAERS Safety Report 13121184 (Version 3)
Quarter: 2018Q1

REPORT INFORMATION
  Report Type: Spontaneous
  Country: CA (occurrence: CA)
  Receive Date: 20170117
  Receipt Date: 20180330
  Transmission Date: 20180508
  Serious: Yes (Other)
  Sender: FDA-Public Use
  Company Number: CA-SA-2017SA006087

PATIENT
  Age: 40 Year
  Sex: Male
  Weight: 81.2 kg

DRUGS (9)
  1. FOLIC ACID. [Concomitant]
     Active Substance: FOLIC ACID
     Route: 065
  2. PLAQUENIL [Suspect]
     Active Substance: HYDROXYCHLOROQUINE SULFATE
     Indication: RHEUMATOID ARTHRITIS
     Route: 065
  3. ENBREL [Suspect]
     Active Substance: ETANERCEPT
     Indication: RHEUMATOID ARTHRITIS
     Route: 058
     Dates: start: 20180217
  4. CANNABIDIOL [Suspect]
     Active Substance: CANNABIDIOL
     Route: 065
  5. SULFASALAZINE. [Suspect]
     Active Substance: SULFASALAZINE
     Indication: RHEUMATOID ARTHRITIS
     Route: 065
  6. ARAVA [Suspect]
     Active Substance: LEFLUNOMIDE
     Indication: RHEUMATOID ARTHRITIS
     Route: 048
  7. METHOTREXATE SODIUM. [Suspect]
     Active Substance: METHOTREXATE SODIUM
     Route: 058
  8. ENBREL [Suspect]
     Active Substance: ETANERCEPT
     Indication: RHEUMATOID ARTHRITIS
     Dosage: SOLUTION FOR INJECTION IN PRE-FILLED SYRINGE
     Route: 058
     Dates: start: 201503
  9. ENBREL [Suspect]
     Active Substance: ETANERCEPT
     Indication: RHEUMATOID ARTHRITIS
     Dosage: SOLUTION FOR INJECTION IN PRE-FILLED SYRINGE
     Route: 065
     Dates: end: 2017

REACTIONS (23)
  - Amnesia [Unknown]
  - Upper respiratory tract infection [Recovering/Resolving]
  - Arthralgia [Unknown]
  - Joint contracture [Unknown]
  - Disease progression [Unknown]
  - C-reactive protein increased [Unknown]
  - Loss of consciousness [Unknown]
  - Nausea [Unknown]
  - Drug dose omission [Unknown]
  - Stress [Unknown]
  - Hand dermatitis [Unknown]
  - Abdominal discomfort [Unknown]
  - Joint swelling [Unknown]
  - Fall [Unknown]
  - Rheumatoid arthritis [Not Recovered/Not Resolved]
  - Vomiting [Unknown]
  - Palpitations [Unknown]
  - Hypertension [Unknown]
  - Dyspnoea [Unknown]
  - Liver function test increased [Unknown]
  - Drug ineffective [Unknown]
  - Alanine aminotransferase increased [Unknown]
  - Drug dependence [Unknown]
